FAERS Safety Report 4906241-9 (Version None)
Quarter: 2006Q1

REPORT INFORMATION
  Report Type: 
  Country: None (occurrence: None)
  Receive Date: 20060207
  Receipt Date: 20060125
  Transmission Date: 20060701
  Serious: Yes (Other)
  Sender: FDA-Public Use
  Company Number: 2005164506

PATIENT
  Age: 53 Year
  Sex: Female

DRUGS (6)
  1. FOSPHENYTOIN SODIUM [Suspect]
     Indication: ILL-DEFINED DISORDER
     Dates: start: 20050214, end: 20051130
  2. PHENYTOIN SODIUM [Suspect]
     Indication: ILL-DEFINED DISORDER
     Dosage: ORAL
     Route: 048
     Dates: end: 20050628
  3. VALPROIC ACID [Concomitant]
  4. LEVETIRACETAM [Concomitant]
  5. ENALAPRIL MALEATE [Concomitant]
  6. QUETIAPINE FUMARATE [Concomitant]

REACTIONS (3)
  - AUTOIMMUNE DISORDER [None]
  - ENCEPHALITIS [None]
  - RASH [None]
